FAERS Safety Report 4845333-X (Version None)
Quarter: 2005Q4

REPORT INFORMATION
  Report Type: 
  Country: None (occurrence: None)
  Receive Date: 20051205
  Receipt Date: 20051128
  Transmission Date: 20060501
  Serious: Yes (Other)
  Sender: FDA-Public Use
  Company Number: IN-GLAXOSMITHKLINE-B0402139A

PATIENT
  Age: 46 Year
  Sex: Male

DRUGS (1)
  1. VINORELBINE TARTRATE [Suspect]
     Indication: BRONCHIAL CARCINOMA
     Route: 065

REACTIONS (8)
  - COUGH [None]
  - DIFFUSE ALVEOLAR DAMAGE [None]
  - DYSPNOEA [None]
  - DYSPNOEA EXACERBATED [None]
  - EMOTIONAL DISTRESS [None]
  - FIBROSIS [None]
  - PNEUMONITIS [None]
  - TACHYCARDIA [None]
